FAERS Safety Report 9219028 (Version 4)
Quarter: 2015Q2

REPORT INFORMATION
  Report Type: Report from Study
  Country: FR (occurrence: FR)
  Receive Date: 20130409
  Receipt Date: 20150603
  Transmission Date: 20150821
  Serious: Yes (Other)
  Sender: FDA-Public Use
  Company Number: PHHY2013FR033719

PATIENT
  Age: 14 Year
  Sex: Male
  Weight: 63 kg

DRUGS (3)
  1. PNEUMO 23 [Suspect]
     Active Substance: PNEUMOCOCCAL VACCINE, POLYVALENT 23
     Indication: IMMUNISATION
     Dosage: UNK
     Dates: start: 20130111
  2. ILARIS [Suspect]
     Active Substance: CANAKINUMAB
     Indication: MUCKLE-WELLS SYNDROME
     Dosage: 116 MG, EVERY 8 WEEKS
     Route: 058
     Dates: start: 20100701
  3. ILARIS [Suspect]
     Active Substance: CANAKINUMAB
     Dosage: 116 MG, EVERY 8 WEEKS
     Dates: start: 20130221

REACTIONS (10)
  - Headache [Recovered/Resolved]
  - Injection site induration [Not Recovered/Not Resolved]
  - Injection site reaction [Recovered/Resolved]
  - Nausea [Recovered/Resolved]
  - Pain [Recovered/Resolved]
  - Peripheral swelling [Recovered/Resolved]
  - Pyrexia [Recovered/Resolved]
  - Abscess [Recovered/Resolved]
  - Injection site inflammation [Recovered/Resolved]
  - Injection site erythema [Recovered/Resolved]

NARRATIVE: CASE EVENT DATE: 20130111
